FAERS Safety Report 8087993-9 (Version None)
Quarter: 2012Q1

REPORT INFORMATION
  Report Type: 
  Country: None (occurrence: None)
  Receive Date: 20120131
  Receipt Date: 20120123
  Transmission Date: 20120608
  Serious: Yes (Death, Hospitalization, Other)
  Sender: FDA-Public Use
  Company Number: SK-AMGEN-SVKSP2011052685

PATIENT
  Age: 59 Year
  Sex: Male

DRUGS (1)
  1. ENBREL [Suspect]
     Indication: RHEUMATOID ARTHRITIS
     Dosage: UNK
     Dates: start: 20101201, end: 20110921

REACTIONS (3)
  - DEATH [None]
  - LUNG DISORDER [None]
  - PNEUMOTHORAX [None]
